FAERS Safety Report 20547348 (Version 1)
Quarter: 2022Q1

REPORT INFORMATION
  Report Type: Spontaneous
  Country: US (occurrence: None)
  Receive Date: 20220303
  Receipt Date: 20220303
  Transmission Date: 20220424
  Serious: No
  Sender: FDA-Public Use
  Company Number: None

PATIENT
  Sex: Female

DRUGS (1)
  1. JAKAFI [Suspect]
     Active Substance: RUXOLITINIB
     Indication: Product used for unknown indication
     Dosage: OTHER FREQUENCY : 2 IN AM + 3 IN PM;?
     Route: 048

REACTIONS (3)
  - Myalgia [None]
  - Dizziness [None]
  - Muscular weakness [None]
